FAERS Safety Report 10745293 (Version 1)
Quarter: 2015Q1

REPORT INFORMATION
  Report Type: Spontaneous
  Country: US (occurrence: None)
  Receive Date: 20150127
  Receipt Date: 20150127
  Transmission Date: 20150721
  Serious: Yes (Other)
  Sender: FDA-Public Use
  Company Number: None

PATIENT
  Age: 55 Year
  Sex: Female
  Weight: 68.04 kg

DRUGS (1)
  1. OMEPRAZOLE MAGNESIUM. [Suspect]
     Active Substance: OMEPRAZOLE MAGNESIUM
     Indication: DYSPEPSIA
     Dosage: 1 PILL ONCE DAILY, TAKEN BY MOUTH
     Route: 048
     Dates: start: 20150101, end: 20150126

REACTIONS (2)
  - Hypertension [None]
  - Weight decreased [None]

NARRATIVE: CASE EVENT DATE: 20150123
